FAERS Safety Report 25947543 (Version 1)
Quarter: 2025Q4

REPORT INFORMATION
  Report Type: Report from Study
  Country: CA (occurrence: CA)
  Receive Date: 20251022
  Receipt Date: 20251022
  Transmission Date: 20260117
  Serious: Yes (Death, Hospitalization, Other)
  Sender: CELLTRION
  Company Number: CA-CELLTRION INC.-2025CA001086

PATIENT

DRUGS (4)
  1. ADALIMUMAB-AATY [Suspect]
     Active Substance: ADALIMUMAB-AATY
     Indication: Hidradenitis
     Dosage: 160 MG
     Route: 058
     Dates: start: 20241011
  2. ADALIMUMAB-AATY [Suspect]
     Active Substance: ADALIMUMAB-AATY
     Dosage: 2 WEEKS LATER 80 MG FOR AN UNKNOWN DURATION
     Route: 058
  3. ADALIMUMAB-AATY [Suspect]
     Active Substance: ADALIMUMAB-AATY
     Dosage: MAINTENANCE - 40 MG - SC (SUBCUTANEOUS) EVERY 7 DAYS
     Route: 058
  4. METFORMIN [Concomitant]
     Active Substance: METFORMIN HYDROCHLORIDE
     Dosage: UNK
     Dates: start: 202406

REACTIONS (14)
  - Aspiration [Fatal]
  - Pneumothorax [Fatal]
  - Hepatic enzyme increased [Fatal]
  - Disseminated tuberculosis [Fatal]
  - Tuberculosis of central nervous system [Fatal]
  - Meningitis tuberculous [Fatal]
  - Weaning failure [Fatal]
  - Tracheostomy [Fatal]
  - Surgical vascular shunt [Fatal]
  - Enteral nutrition [Fatal]
  - Gastrostomy [Fatal]
  - Intentional dose omission [Fatal]
  - Product use issue [Fatal]
  - Intercepted product prescribing error [Fatal]

NARRATIVE: CASE EVENT DATE: 20250201
